FAERS Safety Report 10497869 (Version 2)
Quarter: 2014Q4

REPORT INFORMATION
  Report Type: Spontaneous
  Country: US (occurrence: US)
  Receive Date: 20141006
  Receipt Date: 20141017
  Transmission Date: 20150528
  Serious: Yes (Hospitalization, Other)
  Sender: FDA-Public Use
  Company Number: US-PFIZER INC-2014271461

PATIENT
  Age: 66 Year
  Sex: Female
  Weight: 93.88 kg

DRUGS (17)
  1. NITROSTAT [Suspect]
     Active Substance: NITROGLYCERIN
     Indication: CHEST PAIN
     Dosage: 4 MG, AS NEEDED
  2. SINGULAIR [Concomitant]
     Active Substance: MONTELUKAST SODIUM
     Indication: SINUS DISORDER
  3. ADVAIR DISKUS [Concomitant]
     Active Substance: FLUTICASONE PROPIONATE\SALMETEROL XINAFOATE
     Indication: ASTHMA
     Dosage: (FLUTICASONE PROPIONATE 500MG /SALMETEROL XINAFOATE 50MG), 2X/DAY
  4. DEXILANT [Concomitant]
     Active Substance: DEXLANSOPRAZOLE
     Indication: GASTROOESOPHAGEAL REFLUX DISEASE
     Dosage: 60 MG, DAILY
  5. DIOVAN [Concomitant]
     Active Substance: VALSARTAN
     Indication: HYPERTENSION
     Dosage: 320 MG, DAILY
  6. COUMDAIN [Concomitant]
     Dosage: 2.5 MG, 2X/WEEK
  7. LASIX [Concomitant]
     Active Substance: FUROSEMIDE
     Indication: OEDEMA
  8. TOPROL XL [Concomitant]
     Active Substance: METOPROLOL SUCCINATE
     Dosage: UNK
  9. HYDROCODONE, ACETAMINOPHEN [Concomitant]
     Active Substance: ACETAMINOPHEN\HYDROCODONE BITARTRATE
     Indication: PAIN IN EXTREMITY
     Dosage: (HYDROCODONE BITARTRATE10MG/PARACETAMOL 325 MG), 2X/DAY
  10. CIPROFLOXACIN. [Suspect]
     Active Substance: CIPROFLOXACIN
     Dosage: UNK
  11. LASIX [Concomitant]
     Active Substance: FUROSEMIDE
     Indication: FLUID IMBALANCE
  12. LASIX [Concomitant]
     Active Substance: FUROSEMIDE
     Indication: LIMB DISCOMFORT
  13. FOLIC ACID. [Concomitant]
     Active Substance: FOLIC ACID
     Indication: THALASSAEMIA
     Dosage: 1 MG, UNK
  14. SINGULAIR [Concomitant]
     Active Substance: MONTELUKAST SODIUM
     Indication: ALLERGIC RESPIRATORY DISEASE
     Dosage: 10 MG, DAILY
  15. TIKOSYN [Suspect]
     Active Substance: DOFETILIDE
     Indication: ATRIAL FLUTTER
     Dosage: 250 UG, 2X/DAY
     Dates: start: 201201
  16. COUMDAIN [Concomitant]
     Indication: THROMBOSIS
     Dosage: 5 MG, (5TIMES A WEEK AND TWO TIMES A WEEK SHE TOOK 2.5MG)
  17. LASIX [Concomitant]
     Active Substance: FUROSEMIDE
     Indication: CARDIAC FAILURE CONGESTIVE
     Dosage: 40 MG, DAILY

REACTIONS (6)
  - Varicose vein [Unknown]
  - Fungal infection [Unknown]
  - Drug ineffective [Unknown]
  - Product label issue [Unknown]
  - Cardiac failure congestive [Unknown]
  - Skin ulcer [Unknown]

NARRATIVE: CASE EVENT DATE: 20140707
